FAERS Safety Report 17879460 (Version 1)
Quarter: 2020Q2

REPORT INFORMATION
  Report Type: Spontaneous
  Country: US (occurrence: US)
  Receive Date: 20200609
  Receipt Date: 20200609
  Transmission Date: 20200714
  Serious: Yes (Life-Threatening)
  Sender: FDA-Public Use
  Company Number: None

PATIENT
  Age: 79 Year
  Sex: Male
  Weight: 52.4 kg

DRUGS (1)
  1. DOFETILIDE. [Suspect]
     Active Substance: DOFETILIDE
     Indication: ATRIAL FIBRILLATION
     Route: 048
     Dates: start: 20200530, end: 20200531

REACTIONS (5)
  - Electrocardiogram QRS complex prolonged [None]
  - Ventricular tachycardia [None]
  - Electrocardiogram QT prolonged [None]
  - Pulse absent [None]
  - Ventricular extrasystoles [None]

NARRATIVE: CASE EVENT DATE: 20200531
